FAERS Safety Report 18396860 (Version 1)
Quarter: 2020Q4

REPORT INFORMATION
  Report Type: Spontaneous
  Country: BE (occurrence: BE)
  Receive Date: 20201019
  Receipt Date: 20201019
  Transmission Date: 20210114
  Serious: Yes (Life-Threatening, Hospitalization, Other)
  Sender: FDA-Public Use
  Company Number: BE-LUPIN PHARMACEUTICALS INC.-2020-07430

PATIENT
  Age: 53 Year
  Sex: Female

DRUGS (7)
  1. METHYLPREDNISOLONE. [Suspect]
     Active Substance: METHYLPREDNISOLONE
     Dosage: 16 MILLIGRAM, QD,AT WEEK 8
     Route: 065
  2. TOFACITINIB [Suspect]
     Active Substance: TOFACITINIB
     Indication: COLITIS ULCERATIVE
     Dosage: 10 MILLIGRAM, BID
     Route: 065
     Dates: start: 201811
  3. AMOXICILLIN. [Concomitant]
     Active Substance: AMOXICILLIN
     Indication: SUBCUTANEOUS ABSCESS
     Dosage: UNK
     Route: 048
  4. METHYLPREDNISOLONE. [Suspect]
     Active Substance: METHYLPREDNISOLONE
     Dosage: 20 MILLIGRAM, QD,AT WEEK 4
     Route: 065
  5. VEDOLIZUMAB [Concomitant]
     Active Substance: VEDOLIZUMAB
     Indication: COLITIS ULCERATIVE
     Dosage: UNK
     Route: 065
  6. METHYLPREDNISOLONE. [Suspect]
     Active Substance: METHYLPREDNISOLONE
     Dosage: UNKALTERNATING DOSE OF 4MG/DAY AND 2MG/DAY
     Route: 065
  7. METHYLPREDNISOLONE. [Suspect]
     Active Substance: METHYLPREDNISOLONE
     Indication: COLITIS ULCERATIVE
     Dosage: 24 MILLIGRAM, QD
     Route: 065

REACTIONS (6)
  - Pneumocystis jirovecii pneumonia [Recovering/Resolving]
  - Varicella zoster virus infection [Recovering/Resolving]
  - Infection reactivation [Recovering/Resolving]
  - Nocardiosis [Recovering/Resolving]
  - Disseminated varicella zoster virus infection [Recovering/Resolving]
  - Adenovirus infection [Recovering/Resolving]
